FAERS Safety Report 18379419 (Version 1)
Quarter: 2020Q4

REPORT INFORMATION
  Report Type: Spontaneous
  Country: CA (occurrence: CA)
  Receive Date: 20201013
  Receipt Date: 20201013
  Transmission Date: 20210114
  Serious: Yes (Disabling)
  Sender: FDA-Public Use
  Company Number: CA-ASTRAZENECA-2020SF29921

PATIENT
  Age: 48 Year
  Sex: Male
  Weight: 67 kg

DRUGS (2)
  1. SYMBICORT [Suspect]
     Active Substance: BUDESONIDE\FORMOTEROL FUMARATE DIHYDRATE
     Indication: ASTHMA
     Dosage: 2 DOSAGE FORM TWO TIMES A DAY
     Route: 055
  2. VENTOLIN [Concomitant]
     Active Substance: ALBUTEROL SULFATE

REACTIONS (33)
  - Hot flush [Recovering/Resolving]
  - Dry mouth [Recovering/Resolving]
  - Abdominal distension [Recovering/Resolving]
  - Alopecia [Recovering/Resolving]
  - Chest discomfort [Recovering/Resolving]
  - Ecchymosis [Recovering/Resolving]
  - Muscle spasms [Recovering/Resolving]
  - Secretion discharge [Recovering/Resolving]
  - Tinea pedis [Recovering/Resolving]
  - Oral infection [Recovering/Resolving]
  - Agitation [Recovering/Resolving]
  - Heart rate irregular [Recovering/Resolving]
  - Dyspnoea [Recovering/Resolving]
  - Vulvovaginal mycotic infection [Recovering/Resolving]
  - Dizziness [Recovering/Resolving]
  - Fatigue [Recovering/Resolving]
  - Bone disorder [Recovering/Resolving]
  - Oropharyngeal pain [Recovering/Resolving]
  - Palpitations [Recovering/Resolving]
  - Rash [Recovering/Resolving]
  - Skin atrophy [Recovering/Resolving]
  - Swelling [Recovering/Resolving]
  - Ear infection [Recovering/Resolving]
  - Contusion [Recovering/Resolving]
  - Dysphonia [Recovering/Resolving]
  - Throat irritation [Recovering/Resolving]
  - Abdominal tenderness [Recovering/Resolving]
  - Tremor [Recovering/Resolving]
  - Pharyngitis [Recovering/Resolving]
  - Heart rate increased [Recovering/Resolving]
  - Pruritus [Recovering/Resolving]
  - Pyrexia [Recovering/Resolving]
  - Cough [Recovering/Resolving]
